FAERS Safety Report 6684931-8 (Version None)
Quarter: 2010Q2

REPORT INFORMATION
  Report Type: 
  Country: None (occurrence: None)
  Receive Date: 20100416
  Receipt Date: 20100406
  Transmission Date: 20101027
  Serious: Yes (Hospitalization)
  Sender: FDA-Public Use
  Company Number: BE-ELI_LILLY_AND_COMPANY-BE200908003942

PATIENT
  Sex: Male
  Weight: 57.5 kg

DRUGS (13)
  1. PEMETREXED [Suspect]
     Indication: NON-SMALL CELL LUNG CANCER
     Dosage: 500 MG/M2, DAY 1 EVERY 21 DAYS
     Route: 042
     Dates: start: 20090817
  2. CISPLATIN [Suspect]
     Indication: NON-SMALL CELL LUNG CANCER
     Dosage: 75 MG/M2, DAY 1 EVERY 21 DAYS
     Route: 042
     Dates: start: 20090817
  3. FOLIC ACID [Concomitant]
     Indication: PROPHYLAXIS
     Dates: start: 20090812
  4. VITAMIN B-12 [Concomitant]
     Indication: PROPHYLAXIS
     Dates: start: 20090812
  5. MEDROL [Concomitant]
     Indication: PROPHYLAXIS
  6. DURAGESIC-100 [Concomitant]
     Indication: PAIN
  7. TICLID [Concomitant]
     Indication: PERIPHERAL VASCULAR DISORDER
     Dates: start: 20001020
  8. ALDACTACINE [Concomitant]
  9. DOCRANITI [Concomitant]
     Indication: GASTRIC DISORDER
  10. CIPROXINE [Concomitant]
     Indication: PROPHYLAXIS
     Dosage: UNK, UNK
     Dates: start: 20090817, end: 20090818
  11. LORAMET [Concomitant]
     Indication: SEDATION
  12. ULTRA-MG [Concomitant]
     Indication: PROPHYLAXIS
     Dates: start: 20090818
  13. KYTRIL [Concomitant]
     Indication: PROPHYLAXIS
     Dates: start: 20090818, end: 20090819

REACTIONS (2)
  - HYPONATRAEMIA [None]
  - RENAL FAILURE [None]
